FAERS Safety Report 9543753 (Version 1)
Quarter: 2013Q3

REPORT INFORMATION
  Report Type: Spontaneous
  Country: CY (occurrence: CY)
  Receive Date: 20130923
  Receipt Date: 20130923
  Transmission Date: 20140515
  Serious: Yes (Other)
  Sender: FDA-Public Use
  Company Number: CY-009507513-1209CYP009795

PATIENT
  Sex: Female

DRUGS (1)
  1. GRACIAL [Suspect]
     Indication: CONTRACEPTION
     Dosage: UNK,PO
     Route: 048
     Dates: start: 201202

REACTIONS (1)
  - Nephrotic syndrome [Unknown]
